FAERS Safety Report 10916320 (Version 1)
Quarter: 2015Q1

REPORT INFORMATION
  Report Type: Spontaneous
  Country: US (occurrence: None)
  Receive Date: 20150312
  Receipt Date: 20150312
  Transmission Date: 20150721
  Serious: Yes (Other)
  Sender: FDA-Public Use
  Company Number: None

PATIENT
  Age: 83 Year
  Sex: Female
  Weight: 79.38 kg

DRUGS (14)
  1. GABAPENTIN CAP 100 MG [Suspect]
     Active Substance: GABAPENTIN
     Indication: HERPES ZOSTER
     Dosage: 1 PILL, THREE TIMES DAILY, TAKEN BY MOUTH
     Route: 048
     Dates: start: 20140319, end: 20140329
  2. BENADRYL OR CETIRIZINE [Concomitant]
  3. TUMS [Concomitant]
     Active Substance: CALCIUM CARBONATE
  4. METFORMIN [Concomitant]
     Active Substance: METFORMIN HYDROCHLORIDE
  5. BISOPROLOLL [Concomitant]
  6. CRANBERRY. [Concomitant]
     Active Substance: CRANBERRY
  7. CALCIUM [Concomitant]
     Active Substance: CALCIUM
  8. OSTEO BI FLEX [Concomitant]
  9. ASPIRIN. [Concomitant]
     Active Substance: ASPIRIN
  10. TYLENOL [Concomitant]
     Active Substance: ACETAMINOPHEN
  11. MULTIVITAMIN [Concomitant]
     Active Substance: VITAMINS
  12. JANUVIA??? [Concomitant]
  13. GLIPIZIDE. [Concomitant]
     Active Substance: GLIPIZIDE
  14. CINNAMON. [Concomitant]
     Active Substance: CINNAMON

REACTIONS (2)
  - Onychomadesis [None]
  - Onychoclasis [None]

NARRATIVE: CASE EVENT DATE: 20150310
